FAERS Safety Report 8368097-4 (Version None)
Quarter: 2012Q2

REPORT INFORMATION
  Report Type: 
  Country: None (occurrence: None)
  Receive Date: 20120517
  Receipt Date: 20120502
  Transmission Date: 20120825
  Serious: Yes (Hospitalization)
  Sender: FDA-Public Use
  Company Number: US-SHIRE-ALL1-2012-02263

PATIENT
  Sex: Female
  Weight: 58.957 kg

DRUGS (1)
  1. ADDERALL XR 10 [Suspect]
     Indication: ATTENTION DEFICIT/HYPERACTIVITY DISORDER
     Dosage: UNK UNK, UNKNOWN
     Route: 048

REACTIONS (5)
  - WEIGHT DECREASED [None]
  - INTENTIONAL DRUG MISUSE [None]
  - DRUG DEPENDENCE [None]
  - INSOMNIA [None]
  - DRUG DIVERSION [None]
